FAERS Safety Report 4696550-3 (Version None)
Quarter: 2005Q2

REPORT INFORMATION
  Report Type: 
  Country: None (occurrence: None)
  Receive Date: 20050620
  Receipt Date: 20050606
  Transmission Date: 20051028
  Serious: Yes (Other)
  Sender: FDA-Public Use
  Company Number: 2005064635

PATIENT
  Age: 71 Year
  Sex: Male
  Weight: 103.4201 kg

DRUGS (11)
  1. BEXTRA [Suspect]
     Indication: ARTHRITIS
     Dosage: UNKNOWN (UNK, 1 IN 1 D), ORAL
     Route: 048
     Dates: start: 20040101, end: 20050101
  2. DYAZIDE [Concomitant]
  3. TIAZAC [Concomitant]
  4. POTASSIUM (POTASSIUM) [Concomitant]
  5. MOTRIN [Concomitant]
  6. LIPITOR [Concomitant]
  7. DARVOCET (DEXTROPROPOXYPHENE NAPSILATE, PARACETAMOL) [Concomitant]
  8. PREVACID [Concomitant]
  9. TRAZODONE (TRAZODONE) [Concomitant]
  10. HYDROMORPHONE HCL [Concomitant]
  11. FLONASE [Concomitant]

REACTIONS (8)
  - ABDOMINAL DISCOMFORT [None]
  - ABDOMINAL PAIN [None]
  - CARDIAC VALVE DISEASE [None]
  - DIARRHOEA [None]
  - DRY MOUTH [None]
  - ELECTROCARDIOGRAM ST-T SEGMENT ABNORMAL [None]
  - EXTRASYSTOLES [None]
  - PALPITATIONS [None]
